FAERS Safety Report 11081628 (Version 1)
Quarter: 2015Q2

REPORT INFORMATION
  Report Type: Spontaneous
  Country: US (occurrence: US)
  Receive Date: 20150501
  Receipt Date: 20150501
  Transmission Date: 20150821
  Serious: No
  Sender: FDA-Public Use
  Company Number: US-PFIZER INC-2015145916

PATIENT
  Age: 69 Year
  Sex: Male
  Weight: 63.39 kg

DRUGS (1)
  1. INLYTA [Suspect]
     Active Substance: AXITINIB
     Dosage: UNK

REACTIONS (3)
  - Weight decreased [Unknown]
  - Neoplasm malignant [Unknown]
  - Disease progression [Unknown]
